FAERS Safety Report 8562321 (Version 3)
Quarter: 2013Q1

REPORT INFORMATION
  Report Type: Report from Study
  Country: SE (occurrence: SE)
  Receive Date: 20120515
  Receipt Date: 20130314
  Transmission Date: 20140127
  Serious: Yes (Death, Hospitalization)
  Sender: FDA-Public Use
  Company Number: SE-TEVA-336626ISR

PATIENT
  Age: 68 Year
  Sex: Male

DRUGS (9)
  1. METOPROLOL [Suspect]
  2. AMLODIPINE [Suspect]
  3. RAMIPRIL [Suspect]
  4. SAXAGLIPTIN [Suspect]
     Indication: TYPE 2 DIABETES MELLITUS
     Dates: start: 20110408, end: 20121226
  5. SAXAGLIPTIN [Suspect]
     Dates: start: 20120522, end: 20121226
  6. NOVOMIX [Suspect]
     Indication: TYPE 2 DIABETES MELLITUS
  7. GLYCERYL TRINITRATE [Suspect]
  8. CALCIUM ANTAGONISTS [Concomitant]
  9. ASPIRIN [Concomitant]

REACTIONS (3)
  - Arrhythmia [Fatal]
  - Syncope [Recovered/Resolved]
  - Pneumonia [Recovered/Resolved]
